FAERS Safety Report 8554303-X (Version None)
Quarter: 2012Q3

REPORT INFORMATION
  Report Type: 
  Country: None (occurrence: None)
  Receive Date: 20120731
  Receipt Date: 20120724
  Transmission Date: 20120928
  Serious: Yes (Death, Hospitalization)
  Sender: FDA-Public Use
  Company Number: JP-ROCHE-1093481

PATIENT
  Sex: Female

DRUGS (10)
  1. PURSENNID [Concomitant]
     Indication: CONSTIPATION
     Route: 048
  2. LENDORMIN [Concomitant]
     Indication: INSOMNIA
     Route: 048
  3. ACTEMRA [Suspect]
     Indication: RHEUMATOID ARTHRITIS
     Route: 041
     Dates: start: 20080711, end: 20090119
  4. URSO 250 [Concomitant]
     Indication: BILE DUCT STONE
     Route: 048
     Dates: end: 20101004
  5. MUCOSTA [Concomitant]
     Indication: GASTRITIS
     Route: 048
  6. ALOSENN [Concomitant]
     Indication: CONSTIPATION
     Route: 048
  7. MARZULENE [Concomitant]
     Indication: GASTRITIS
     Route: 048
  8. PROTECADIN [Concomitant]
     Route: 048
     Dates: end: 20101004
  9. PREDNISOLONE [Concomitant]
     Route: 048
     Dates: start: 20091218, end: 20101013
  10. PREDNISOLONE [Concomitant]
     Indication: RHEUMATOID ARTHRITIS
     Route: 048
     Dates: end: 20081007

REACTIONS (3)
  - AORTIC ANEURYSM RUPTURE [None]
  - ABSCESS [None]
  - ARTERIOENTERIC FISTULA [None]
